FAERS Safety Report 7060748-X (Version None)
Quarter: 2010Q4

REPORT INFORMATION
  Report Type: 
  Country: None (occurrence: None)
  Receive Date: 20101025
  Receipt Date: 20101018
  Transmission Date: 20110411
  Serious: Yes (Life-Threatening, Hospitalization, Other)
  Sender: FDA-Public Use
  Company Number: IE-B.I. PHARMACEUTICALS,INC./RIDGEFIELD-2010-UK-00909UK

PATIENT
  Sex: Female
  Weight: 93 kg

DRUGS (6)
  1. PRADAXA [Suspect]
     Indication: KNEE ARTHROPLASTY
     Dosage: 110 MG
     Route: 048
     Dates: start: 20100809, end: 20100809
  2. PRADAXA [Suspect]
     Dosage: 220 MG
     Route: 048
     Dates: start: 20100810
  3. ATENOLOL [Concomitant]
     Dosage: 100 MG
     Route: 048
  4. ZANIDIP [Concomitant]
     Dosage: 20 MG
     Route: 048
  5. FOLIC ACID [Concomitant]
     Dosage: 20 MG
     Route: 048
  6. BUMEX [Concomitant]
     Dosage: 2 MG
     Route: 048

REACTIONS (3)
  - DYSPNOEA [None]
  - OXYGEN SATURATION DECREASED [None]
  - PULMONARY EMBOLISM [None]
